FAERS Safety Report 9277792 (Version 1)
Quarter: 2013Q2

REPORT INFORMATION
  Report Type: Spontaneous
  Country: DE (occurrence: DE)
  Receive Date: 20130508
  Receipt Date: 20130508
  Transmission Date: 20140414
  Serious: Yes (Other)
  Sender: FDA-Public Use
  Company Number: PHHY2013DE044117

PATIENT
  Sex: Male

DRUGS (3)
  1. RASILEZ [Suspect]
     Dosage: 300 MG, UNK
  2. CORIFEO [Concomitant]
     Dosage: UNK UKN, UNK
  3. NEBILET [Concomitant]
     Dosage: UNK UKN, UNK

REACTIONS (1)
  - Parkinson^s disease [Not Recovered/Not Resolved]
